FAERS Safety Report 4539540-3 (Version None)
Quarter: 2004Q4

REPORT INFORMATION
  Report Type: 
  Country: None (occurrence: None)
  Receive Date: 20041222
  Receipt Date: 20041207
  Transmission Date: 20050328
  Serious: Yes (Death)
  Sender: FDA-Public Use
  Company Number: GBS041116044

PATIENT
  Sex: Female

DRUGS (7)
  1. FLUOXETINE [Suspect]
     Dosage: 40 MG/1 DAY
     Dates: start: 20040210
  2. ZOPICLONE [Concomitant]
  3. RISPERIDONE [Concomitant]
  4. DIGOXIN [Concomitant]
  5. PANTOPRAZOLE SODIUM [Concomitant]
  6. HALOPERIDOL (HALOPERIDOL DECANOATE) [Concomitant]
  7. FOLIC ACID [Concomitant]

REACTIONS (6)
  - AGITATION [None]
  - BRONCHOPNEUMONIA [None]
  - CONFUSIONAL STATE [None]
  - DEHYDRATION [None]
  - GENERAL PHYSICAL HEALTH DETERIORATION [None]
  - MOBILITY DECREASED [None]
